APPROVED DRUG PRODUCT: NAFTIFINE HYDROCHLORIDE
Active Ingredient: NAFTIFINE HYDROCHLORIDE
Strength: 1%
Dosage Form/Route: GEL;TOPICAL
Application: A206165 | Product #001 | TE Code: AB
Applicant: AMNEAL PHARMACEUTICALS LLC
Approved: Mar 20, 2019 | RLD: No | RS: No | Type: RX